FAERS Safety Report 19026551 (Version 1)
Quarter: 2021Q1

REPORT INFORMATION
  Report Type: Report from Study
  Country: US (occurrence: US)
  Receive Date: 20210318
  Receipt Date: 20210318
  Transmission Date: 20210420
  Serious: Yes (Hospitalization, Other)
  Sender: FDA-Public Use
  Company Number: US-GILEAD-2021-0520398

PATIENT
  Age: 35 Year
  Sex: Female

DRUGS (1)
  1. SOFOSBUVIR W/VELPATASVIR [Suspect]
     Active Substance: SOFOSBUVIR\VELPATASVIR
     Indication: CHRONIC HEPATITIS C
     Dosage: 1 DOSAGE FORM, QD
     Route: 065
     Dates: start: 20210222, end: 20210308

REACTIONS (9)
  - Confusional state [Unknown]
  - Asthenia [Unknown]
  - Flushing [Unknown]
  - Fatigue [Unknown]
  - Eye haemorrhage [Unknown]
  - Irritability [Unknown]
  - Headache [Unknown]
  - Body temperature increased [Unknown]
  - Urticaria [Unknown]

NARRATIVE: CASE EVENT DATE: 202102
